FAERS Safety Report 24350492 (Version 1)
Quarter: 2024Q3

REPORT INFORMATION
  Report Type: Spontaneous
  Country: US (occurrence: US)
  Receive Date: 20240923
  Receipt Date: 20240923
  Transmission Date: 20241017
  Serious: Yes (Hospitalization)
  Sender: MYLAN
  Company Number: US-MYLANLABS-2024M1085040

PATIENT
  Age: 52 Year
  Sex: Male

DRUGS (22)
  1. FUROSEMIDE [Interacting]
     Active Substance: FUROSEMIDE
     Indication: Hepatic cirrhosis
     Dosage: 20 MILLIGRAM, QD
     Route: 065
  2. FUROSEMIDE [Interacting]
     Active Substance: FUROSEMIDE
     Indication: Hypertension
  3. POTASSIUM CHLORIDE [Interacting]
     Active Substance: POTASSIUM CHLORIDE
     Indication: Product used for unknown indication
     Dosage: 10 MILLIEQUIVALENT, QD
     Route: 065
  4. ACYCLOVIR [Interacting]
     Active Substance: ACYCLOVIR
     Indication: Product used for unknown indication
     Dosage: 200 MILLIGRAM, QD
     Route: 065
  5. PANTOPRAZOLE [Interacting]
     Active Substance: PANTOPRAZOLE
     Indication: Gastrooesophageal reflux disease
     Dosage: 40 MILLIGRAM, BID
     Route: 048
  6. PANTOPRAZOLE [Interacting]
     Active Substance: PANTOPRAZOLE
     Dosage: 40 MILLIGRAM, QD
     Route: 048
  7. GABAPENTIN [Interacting]
     Active Substance: GABAPENTIN
     Indication: Product used for unknown indication
     Dosage: 600 MILLIGRAM, BID
     Route: 065
  8. SILDENAFIL [Interacting]
     Active Substance: SILDENAFIL
     Indication: Erectile dysfunction
     Dosage: 100 MILLIGRAM, QW; FREQUENCY - ONCE WEEKLY AS NEEDED
     Route: 065
  9. BUPRENORPHINE HYDROCHLORIDE\NALOXONE HYDROCHLORIDE [Interacting]
     Active Substance: BUPRENORPHINE HYDROCHLORIDE\NALOXONE HYDROCHLORIDE
     Indication: Drug dependence
     Dosage: UNK, BID
     Route: 060
  10. BUPROPION [Interacting]
     Active Substance: BUPROPION
     Indication: Tobacco user
     Dosage: 300 MILLIGRAM, QD
     Route: 065
  11. BUPROPION [Interacting]
     Active Substance: BUPROPION
     Indication: Drug abuse
  12. BUPROPION [Interacting]
     Active Substance: BUPROPION
     Indication: Alcohol abuse
  13. TESTOSTERONE [Interacting]
     Active Substance: TESTOSTERONE
     Indication: Erectile dysfunction
     Dosage: 200 MILLIGRAM PER MILLILITRE, BIWEEKLY
     Route: 030
  14. FERROUS SULFATE [Interacting]
     Active Substance: FERROUS SULFATE
     Indication: Iron deficiency anaemia
     Dosage: 324 MILLIGRAM, QD
     Route: 065
  15. DOCUSATE [Interacting]
     Active Substance: DOCUSATE
     Indication: Gastrooesophageal reflux disease
     Dosage: 240 MILLIGRAM, QD
     Route: 065
  16. CHOLECALCIFEROL [Interacting]
     Active Substance: CHOLECALCIFEROL
     Indication: Vitamin D deficiency
     Dosage: UNK UNK, QD; 2000 UNITS
     Route: 065
  17. ALBUTEROL\IPRATROPIUM [Interacting]
     Active Substance: ALBUTEROL\IPRATROPIUM
     Indication: Product used for unknown indication
     Dosage: UNK; INHALER
     Route: 065
  18. ALBUTEROL [Interacting]
     Active Substance: ALBUTEROL
     Indication: Product used for unknown indication
     Dosage: UNK, INHALER
     Route: 065
  19. SOFOSBUVIR\VELPATASVIR [Interacting]
     Active Substance: SOFOSBUVIR\VELPATASVIR
     Indication: Chronic hepatitis C
     Dosage: 1 DOSAGE FORM, QD; ONE TABLET ONCE DAILY
     Route: 065
  20. OMEPRAZOLE [Concomitant]
     Active Substance: OMEPRAZOLE
     Indication: Gastrooesophageal reflux disease
     Dosage: UNK
     Route: 065
  21. PEGINTERFERON ALFA-2B [Concomitant]
     Active Substance: PEGINTERFERON ALFA-2B
     Indication: Chronic hepatitis C
     Dosage: UNK
     Route: 065
  22. RIBAVIRIN [Concomitant]
     Active Substance: RIBAVIRIN
     Indication: Chronic hepatitis C
     Dosage: UNK
     Route: 065

REACTIONS (2)
  - Drug interaction [Unknown]
  - Mental status changes [Unknown]
